FAERS Safety Report 7842736-6 (Version None)
Quarter: 2011Q4

REPORT INFORMATION
  Report Type: 
  Country: None (occurrence: None)
  Receive Date: 20111025
  Receipt Date: 20111018
  Transmission Date: 20120403
  Serious: Yes (Hospitalization, Other)
  Sender: FDA-Public Use
  Company Number: NL-AMGEN-NLDNI2011026400

PATIENT
  Age: 58 Year
  Sex: Female

DRUGS (12)
  1. IBUPROFEN [Concomitant]
     Dosage: 1200 MG, UNK
  2. DOXORUBICIN HCL [Suspect]
     Dosage: 82 MG, UNK
     Route: 042
     Dates: start: 20110511
  3. ACETAMINOPHEN [Concomitant]
     Dosage: 1000 MG, UNK
  4. PANTOPRAZOLE [Concomitant]
     Dosage: 40 MG, UNK
  5. NEULASTA [Suspect]
     Indication: CHEMOTHERAPY
     Dosage: .6 ML, 3 TIMES/WK
     Route: 058
     Dates: start: 20110512
  6. DICLOPHENAC [Concomitant]
     Dosage: 50 UNK, UNK
  7. OXAZEPAM [Concomitant]
     Dosage: 50 MG, UNK
  8. CYCLOPHOSPHAMIDE [Suspect]
     Dosage: 810 MG, UNK
     Dates: start: 20110511
  9. DEXAMETHASONE [Concomitant]
  10. TEMAZEPAM [Concomitant]
     Dosage: 20 MG, UNK
  11. DOCETAXEL [Suspect]
     Dosage: 120 MG, UNK
     Dates: start: 20110511
  12. ONDANSETRON [Concomitant]

REACTIONS (2)
  - FEBRILE NEUTROPENIA [None]
  - PSEUDOMONAL BACTERAEMIA [None]
